FAERS Safety Report 4508955-1 (Version None)
Quarter: 2004Q4

REPORT INFORMATION
  Report Type: 
  Country: None (occurrence: None)
  Receive Date: 20041122
  Receipt Date: 20041112
  Transmission Date: 20050328
  Serious: Yes (Hospitalization)
  Sender: FDA-Public Use
  Company Number: STA-AE-04-MTX-569

PATIENT
  Age: 69 Year
  Sex: Female

DRUGS (10)
  1. RHEUMATREX [Suspect]
     Indication: RHEUMATOID ARTHRITIS
     Dosage: 6 MG 1X PER 1 WK
     Dates: start: 20030101
  2. PREDNISOLONE [Suspect]
     Indication: RHEUMATOID ARTHRITIS
     Dosage: 10 MG/DAY TABLET, ORAL
     Route: 048
     Dates: start: 20040402
  3. REMICADE [Suspect]
     Indication: RHEUMATOID ARTHRITIS
     Dosage: 3 MG/KG 1X PER 1 DAY, INTRAVENOUS
     Route: 042
     Dates: start: 20040407, end: 20040407
  4. REMICADE [Suspect]
     Indication: RHEUMATOID ARTHRITIS
     Dosage: 3 MG/KG 1X PER 1 DAY, INTRAVENOUS
     Route: 042
     Dates: start: 20040428, end: 20040428
  5. REMICADE [Suspect]
     Indication: RHEUMATOID ARTHRITIS
     Dosage: 3 MG/KG 1X PER 1 DAY, INTRAVENOUS
     Route: 042
     Dates: start: 20040524, end: 20040524
  6. ISONIAZID [Concomitant]
  7. NEUROVITAN (CYANOCOBALAMIN/OCTOTIAMINE/PYRIDOXINE HYDROCHLORIDE/RIBOFL [Concomitant]
  8. ETODOLAC [Concomitant]
  9. RISEDRONATE SODIUM [Concomitant]
  10. GASTER (FAMOTIDINE) [Concomitant]

REACTIONS (2)
  - ASTHMA [None]
  - PNEUMONIA [None]
